FAERS Safety Report 22387270 (Version 2)
Quarter: 2023Q2

REPORT INFORMATION
  Report Type: Spontaneous
  Country: US (occurrence: US)
  Receive Date: 20230531
  Receipt Date: 20230616
  Transmission Date: 20230721
  Serious: Yes (Hospitalization, Other)
  Sender: FDA-Public Use
  Company Number: US-BEH-2023159289

PATIENT
  Sex: Male

DRUGS (6)
  1. PRIVIGEN [Suspect]
     Active Substance: HUMAN IMMUNOGLOBULIN G
     Indication: Encephalitis
     Dosage: 140 GM, Q3W
     Route: 042
     Dates: start: 202008
  2. PRIVIGEN [Suspect]
     Active Substance: HUMAN IMMUNOGLOBULIN G
     Indication: Encephalomyelitis
     Dosage: 150 GM, Q3W
     Route: 042
     Dates: start: 202008
  3. PRIVIGEN [Suspect]
     Active Substance: HUMAN IMMUNOGLOBULIN G
     Indication: Epilepsy
     Dosage: 140 GM, Q3W
     Route: 042
     Dates: start: 202207
  4. PRIVIGEN [Suspect]
     Active Substance: HUMAN IMMUNOGLOBULIN G
     Dosage: 10 GRAM, Q3W
     Route: 042
     Dates: start: 202207
  5. PRIVIGEN [Suspect]
     Active Substance: HUMAN IMMUNOGLOBULIN G
     Dosage: 140 GM, Q3W, DIVIDED OVER 2 DAYS
     Route: 042
     Dates: start: 202008
  6. PRIVIGEN [Suspect]
     Active Substance: HUMAN IMMUNOGLOBULIN G
     Dosage: 10 GRAM, Q3W, DIVIDED OVER 2 DAYS
     Route: 042
     Dates: start: 202008

REACTIONS (5)
  - Clavicle fracture [Unknown]
  - No adverse event [Unknown]
  - Off label use [Unknown]
  - Diabetic ketoacidosis [Unknown]
  - Suicidal ideation [Unknown]
